FAERS Safety Report 5624413-5 (Version None)
Quarter: 2008Q1

REPORT INFORMATION
  Report Type: 
  Country: None (occurrence: None)
  Receive Date: 20080213
  Receipt Date: 20080208
  Transmission Date: 20080703
  Serious: Yes (Hospitalization)
  Sender: FDA-Public Use
  Company Number: JP-BRISTOL-MYERS SQUIBB COMPANY-14072102

PATIENT
  Age: 60 Year
  Sex: Female

DRUGS (6)
  1. TAXOL [Suspect]
     Indication: NON-SMALL CELL LUNG CANCER
     Route: 041
     Dates: start: 20080116, end: 20080116
  2. PARAPLATIN [Suspect]
     Indication: NON-SMALL CELL LUNG CANCER
     Route: 041
     Dates: start: 20080116, end: 20080116
  3. METFORMIN HCL [Suspect]
     Indication: DIABETES MELLITUS
     Route: 048
  4. MICARDIS [Suspect]
     Indication: HYPERTENSION
     Route: 048
  5. FASTIC [Suspect]
     Indication: DIABETES MELLITUS
     Route: 048
  6. NOVAMIN [Suspect]
     Indication: NAUSEA
     Route: 048
     Dates: start: 20080122

REACTIONS (1)
  - VENOUS THROMBOSIS LIMB [None]
